FAERS Safety Report 6638478-5 (Version None)
Quarter: 2010Q1

REPORT INFORMATION
  Report Type: 
  Country: None (occurrence: None)
  Receive Date: 20100317
  Receipt Date: 20100309
  Transmission Date: 20100710
  Serious: Yes (Hospitalization)
  Sender: FDA-Public Use
  Company Number: AT-MERCK-1003AUT00004

PATIENT
  Sex: Female

DRUGS (3)
  1. VYTORIN [Suspect]
     Route: 065
  2. PHENPROCOUMON [Suspect]
     Route: 065
  3. ROSUVASTATIN CALCIUM [Concomitant]
     Route: 065

REACTIONS (3)
  - COAGULOPATHY [None]
  - OVERDOSE [None]
  - VITAMIN K DEFICIENCY [None]
